FAERS Safety Report 5903570-7 (Version None)
Quarter: 2008Q3

REPORT INFORMATION
  Report Type: 
  Country: None (occurrence: None)
  Receive Date: 20080919
  Receipt Date: 20080612
  Transmission Date: 20090109
  Serious: No
  Sender: FDA-Public Use
  Company Number: US-WYE-H04524308

PATIENT
  Age: 52 Year
  Sex: Female
  Weight: 55.39 kg

DRUGS (2)
  1. PRISTIQ [Suspect]
     Dosage: 50 MG 1X PER 1 DAY, ORAL
     Route: 048
     Dates: start: 20080611, end: 20080611
  2. TRIAVIL (AMITRIPTYLINE HYDROCHLORIDE/PERPHENAZINE) [Concomitant]

REACTIONS (5)
  - DYSPEPSIA [None]
  - ERUCTATION [None]
  - INSOMNIA [None]
  - IRRITABILITY [None]
  - RESTLESSNESS [None]
